FAERS Safety Report 19724116 (Version 1)
Quarter: 2021Q3

REPORT INFORMATION
  Report Type: Spontaneous
  Country: CN (occurrence: CN)
  Receive Date: 20210820
  Receipt Date: 20210820
  Transmission Date: 20211014
  Serious: Yes (Hospitalization, Other)
  Sender: FDA-Public Use
  Company Number: CN-009507513-2108CHN004214

PATIENT
  Age: 63 Year
  Sex: Female
  Weight: 40 kg

DRUGS (2)
  1. TIENAM [Suspect]
     Active Substance: CILASTATIN SODIUM\IMIPENEM
     Indication: INFECTION
     Dosage: 1 G, EVERY 8 HOURS (Q8H)
     Route: 041
     Dates: start: 20210528, end: 20210602
  2. SODIUM CHLORIDE. [Concomitant]
     Active Substance: SODIUM CHLORIDE
     Indication: MEDICATION DILUTION
     Dosage: 100 ML, Q8H
     Route: 041
     Dates: start: 20210528, end: 20210602

REACTIONS (3)
  - Hyperventilation [Unknown]
  - Mental disorder [Recovering/Resolving]
  - Respiratory alkalosis [Unknown]

NARRATIVE: CASE EVENT DATE: 20210602
